FAERS Safety Report 15378963 (Version 1)
Quarter: 2018Q3

REPORT INFORMATION
  Report Type: Spontaneous
  Country: US (occurrence: US)
  Receive Date: 20180906
  Receipt Date: 20180906
  Transmission Date: 20181010
  Serious: Yes (Hospitalization)
  Sender: FDA-Public Use
  Company Number: None

PATIENT
  Age: 76 Year
  Sex: Male

DRUGS (3)
  1. XGEVA [Concomitant]
     Active Substance: DENOSUMAB
  2. PREDNISONE. [Concomitant]
     Active Substance: PREDNISONE
  3. ZYTIGA [Suspect]
     Active Substance: ABIRATERONE ACETATE
     Indication: PROSTATE CANCER
     Route: 048
     Dates: start: 20141003

REACTIONS (1)
  - Rhabdomyolysis [None]
